FAERS Safety Report 4990747-0 (Version None)
Quarter: 2006Q2

REPORT INFORMATION
  Report Type: 
  Country: None (occurrence: None)
  Receive Date: 20060428
  Receipt Date: 20060421
  Transmission Date: 20061013
  Serious: Yes (Life-Threatening, Other)
  Sender: FDA-Public Use
  Company Number: TCI2006A00663

PATIENT
  Age: 35 Year
  Sex: Female

DRUGS (12)
  1. ACTOS [Suspect]
     Indication: DIABETES MELLITUS
     Dosage: SEE IMAGE
     Route: 048
     Dates: start: 20050108, end: 20050118
  2. ACTOS [Suspect]
     Indication: DIABETES MELLITUS
     Dosage: SEE IMAGE
     Route: 048
     Dates: start: 20050712, end: 20050914
  3. ACTOS [Suspect]
     Indication: DIABETES MELLITUS
     Dosage: SEE IMAGE
     Route: 048
     Dates: start: 20051203, end: 20060106
  4. ACTOS [Suspect]
     Indication: DIABETES MELLITUS
     Dosage: SEE IMAGE
     Route: 048
     Dates: start: 20060107, end: 20060204
  5. DIAMOX [Suspect]
     Dosage: 250 MG, 1 D
     Dates: start: 20050630, end: 20060204
  6. BASEN OD (VOGLIBOSE) [Concomitant]
  7. AMARYL [Concomitant]
  8. FASTIC (NATEGLINIDE) [Concomitant]
  9. ADONA [AC-17] (CARBAZOCHROME SODIUM SULFONATE) [Concomitant]
  10. CARNACULIN (KALLIDINOGENASE) [Concomitant]
  11. TRUSOPT [Concomitant]
  12. DICLOD (DICLOFENAC SODIUM) [Concomitant]

REACTIONS (15)
  - ASTHENIA [None]
  - BLOOD CHLORIDE DECREASED [None]
  - BLOOD CREATINE PHOSPHOKINASE INCREASED [None]
  - BLOOD SODIUM INCREASED [None]
  - DIABETIC NEUROPATHY [None]
  - DIABETIC RETINOPATHY [None]
  - ELECTROCARDIOGRAM T WAVE AMPLITUDE DECREASED [None]
  - ELECTROCARDIOGRAM U-WAVE ABNORMALITY [None]
  - GRIP STRENGTH DECREASED [None]
  - HYPOKALAEMIA [None]
  - MALAISE [None]
  - MUSCLE DISORDER [None]
  - MUSCULAR WEAKNESS [None]
  - MYALGIA [None]
  - RETINAL HAEMORRHAGE [None]
